FAERS Safety Report 5235055-8 (Version None)
Quarter: 2007Q1

REPORT INFORMATION
  Report Type: 
  Country: None (occurrence: None)
  Receive Date: 20070207
  Receipt Date: 20070126
  Transmission Date: 20070707
  Serious: Yes (Death, Hospitalization)
  Sender: FDA-Public Use
  Company Number: TPA2006A01856

PATIENT
  Age: 44 Year
  Sex: Female
  Weight: 88.2 kg

DRUGS (8)
  1. PIOGLITAZONE HCL [Suspect]
     Indication: GLUCOSE TOLERANCE IMPAIRED
     Dosage: SEE IMAGE, PER ORAL
     Route: 048
     Dates: start: 20050820
  2. ZOLOFT [Concomitant]
  3. SYNTHROID [Concomitant]
  4. AMBIEN [Concomitant]
  5. SONATA [Concomitant]
  6. FIORINAL (ACETYLSALICYLIC ACID, CAFFEINE, BUTALBITAL) [Concomitant]
  7. ADVIL [Concomitant]
  8. XANAX [Concomitant]

REACTIONS (9)
  - ANOXIC ENCEPHALOPATHY [None]
  - CARDIAC ARREST [None]
  - CONTUSION [None]
  - FALL [None]
  - GASTROINTESTINAL HAEMORRHAGE [None]
  - HYPERGLYCAEMIA [None]
  - METABOLIC ACIDOSIS [None]
  - REFUSAL OF TREATMENT BY RELATIVE [None]
  - SINUS TACHYCARDIA [None]
